FAERS Safety Report 7541776-4 (Version None)
Quarter: 2011Q2

REPORT INFORMATION
  Report Type: 
  Country: None (occurrence: None)
  Receive Date: 20110613
  Receipt Date: 20110606
  Transmission Date: 20111010
  Serious: Yes (Death)
  Sender: FDA-Public Use
  Company Number: US-US-EMD SERONO, INC.-7063703

PATIENT
  Sex: Female
  Weight: 73 kg

DRUGS (2)
  1. REBIF [Suspect]
     Indication: RELAPSING-REMITTING MULTIPLE SCLEROSIS
     Route: 058
     Dates: start: 20100510
  2. REBIF [Suspect]
     Route: 058

REACTIONS (3)
  - EPIGASTRIC DISCOMFORT [None]
  - MYOCARDIAL INFARCTION [None]
  - ANKLE FRACTURE [None]
